FAERS Safety Report 8756773 (Version 2)
Quarter: 2012Q4

REPORT INFORMATION
  Report Type: 
  Country: FR (occurrence: FR)
  Receive Date: 20120824
  Receipt Date: 20121127
  Transmission Date: 20130627
  Serious: Yes (Death, Other)
  Sender: FDA-Public Use
  Company Number: FR-ELI_LILLY_AND_COMPANY-FR201208005894

PATIENT
  Age: 22 Year
  Sex: Male

DRUGS (15)
  1. ZYPREXA [Suspect]
     Indication: PSYCHOTIC DISORDER
     Dosage: 20 mg, qd
     Dates: start: 20120716
  2. ZYPREXA [Suspect]
     Dosage: 30 mg, qd
     Dates: start: 20120717
  3. RISPERDAL [Concomitant]
     Dosage: 4 mg, unknown
     Route: 048
  4. RISPERDAL [Concomitant]
     Dosage: 50 mg, UNK
     Route: 030
  5. LOXAPAC [Concomitant]
     Dosage: 100 Gtt, unknown
  6. LOXAPAC [Concomitant]
     Dosage: 300 Gtt, qd
  7. LOXAPAC [Concomitant]
     Dosage: 200 Gtt, qd
  8. VALIUM [Concomitant]
     Dosage: 30 Gtt, unknown
  9. VALIUM [Concomitant]
     Dosage: 30 Gtt, qd
  10. VALIUM [Concomitant]
     Dosage: 90 Gtt, qd
  11. VALIUM [Concomitant]
     Dosage: 5 DF, qd
  12. THERALENE [Concomitant]
     Dosage: 30 Gtt, each evening
  13. AKINETON                                /SCH/ [Concomitant]
     Dosage: 1 DF, each morning
  14. IMOVANE [Concomitant]
     Dosage: 1 DF, each evening
  15. HALDOL [Concomitant]

REACTIONS (12)
  - Pulmonary oedema [Fatal]
  - Brain oedema [Fatal]
  - Brain death [Fatal]
  - Cardiac arrest [Fatal]
  - Head injury [Not Recovered/Not Resolved]
  - Loss of consciousness [Not Recovered/Not Resolved]
  - Multi-organ failure [Not Recovered/Not Resolved]
  - Hepatic failure [Not Recovered/Not Resolved]
  - Renal failure [Not Recovered/Not Resolved]
  - Disseminated intravascular coagulation [Not Recovered/Not Resolved]
  - Pancreatitis [Not Recovered/Not Resolved]
  - Prescribed overdose [Not Recovered/Not Resolved]
